FAERS Safety Report 7366906-9 (Version None)
Quarter: 2011Q1

REPORT INFORMATION
  Report Type: 
  Country: None (occurrence: None)
  Receive Date: 20110322
  Receipt Date: 20110314
  Transmission Date: 20110831
  Serious: Yes (Hospitalization)
  Sender: FDA-Public Use
  Company Number: B0699676A

PATIENT
  Age: 52 Year
  Sex: Female

DRUGS (2)
  1. AVANDIA [Suspect]
     Dosage: 2MG PER DAY
     Route: 048
     Dates: start: 20060504, end: 20070821
  2. AVANDAMET [Suspect]
     Route: 048
     Dates: start: 20040923, end: 20060504

REACTIONS (2)
  - ACUTE MYOCARDIAL INFARCTION [None]
  - STENT PLACEMENT [None]
